FAERS Safety Report 20011078 (Version 2)
Quarter: 2022Q1

REPORT INFORMATION
  Report Type: Report from Study
  Country: FR (occurrence: FR)
  Receive Date: 20211028
  Receipt Date: 20220228
  Transmission Date: 20220423
  Serious: Yes (Hospitalization)
  Sender: FDA-Public Use
  Company Number: FR-SERVIER-S21011640

PATIENT

DRUGS (5)
  1. PEGASPARGASE [Suspect]
     Active Substance: PEGASPARGASE
     Indication: Acute lymphocytic leukaemia
     Dosage: 875 IU ON D12 AND D26
     Route: 042
     Dates: start: 20210416, end: 20210520
  2. TN UNSPECIFIED [Concomitant]
     Indication: Acute lymphocytic leukaemia
     Dosage: 41 MG (60 MG/M2/DAY) ON D1 TO D7
     Route: 042
     Dates: start: 20210416, end: 20210520
  3. TN UNSPECIFIED [Concomitant]
     Indication: Acute lymphocytic leukaemia
     Dosage: 4 MG ON D8 AND D22
     Route: 048
     Dates: start: 20210416, end: 20210521
  4. TN UNSPECIFIED [Concomitant]
     Indication: Acute lymphocytic leukaemia
     Dosage: 1 MG ON D8, D15, D22, AND D29
     Route: 042
     Dates: start: 20210416, end: 20210521
  5. TN UNSPECIFIED [Concomitant]
     Indication: Acute lymphocytic leukaemia
     Dosage: 12 MG ON D1, D13, AND D29
     Route: 037
     Dates: start: 20210416, end: 20210520

REACTIONS (1)
  - Hepatic steatosis [Recovered/Resolved]

NARRATIVE: CASE EVENT DATE: 20210416
